FAERS Safety Report 5124325-X (Version None)
Quarter: 2006Q3

REPORT INFORMATION
  Report Type: 
  Country: None (occurrence: None)
  Receive Date: 20060816
  Receipt Date: 20060523
  Transmission Date: 20061208
  Serious: No
  Sender: FDA-Public Use
  Company Number: US200605005124

PATIENT
  Age: 60 Year
  Sex: Male

DRUGS (1)
  1. CIALS (TADALAFIL) TABLET [Suspect]
     Indication: ERECTILE DYSFUNCTION
     Dosage: ORAL
     Route: 047

REACTIONS (1)
  - DRUG INEFFECTIVE [None]
